FAERS Safety Report 18773940 (Version 1)
Quarter: 2021Q1

REPORT INFORMATION
  Report Type: Report from Study
  Country: US (occurrence: US)
  Receive Date: 20210122
  Receipt Date: 20210122
  Transmission Date: 20210419
  Serious: Yes (Hospitalization)
  Sender: FDA-Public Use
  Company Number: US-JNJFOC-A-NJ2020-207300

PATIENT
  Age: 66 Year
  Sex: Female

DRUGS (1)
  1. OPSUMIT [Suspect]
     Active Substance: MACITENTAN
     Indication: PULMONARY ARTERIAL HYPERTENSION
     Dosage: 10 MG, QD
     Route: 048
     Dates: start: 202005

REACTIONS (10)
  - Eructation [Unknown]
  - Peripheral swelling [Not Recovered/Not Resolved]
  - Dysphagia [Unknown]
  - Gastrooesophageal reflux disease [Unknown]
  - Dyspepsia [Recovered/Resolved]
  - Paraesthesia [Not Recovered/Not Resolved]
  - Hospitalisation [Unknown]
  - Chest discomfort [Recovered/Resolved]
  - Muscle tightness [Not Recovered/Not Resolved]
  - Pain in extremity [Not Recovered/Not Resolved]

NARRATIVE: CASE EVENT DATE: 2020
